FAERS Safety Report 10278060 (Version 1)
Quarter: 2014Q3

REPORT INFORMATION
  Report Type: Spontaneous
  Country: SE (occurrence: SE)
  Receive Date: 20140704
  Receipt Date: 20140704
  Transmission Date: 20150326
  Serious: Yes (Other)
  Sender: FDA-Public Use
  Company Number: SE-009507513-1406SWE012350

PATIENT
  Age: 73 Year
  Sex: Female

DRUGS (23)
  1. METOPROLOL TARTRATE. [Concomitant]
     Active Substance: METOPROLOL TARTRATE
  2. ALVEDON [Concomitant]
     Active Substance: ACETAMINOPHEN
  3. ISOPTO MAXIDEX [Concomitant]
  4. LAMISIL (TERBINAFINE HYDROCHLORIDE) [Concomitant]
     Dosage: FORMULATION: CUTANEOUS SOLUTION
  5. LORATADIN HEXAL [Concomitant]
     Active Substance: LORATADINE
  6. TARGINIQ [Concomitant]
  7. ANAPEN (EPINEPHRINE) [Concomitant]
  8. BETAPRED (BETAMETHASONE SODIUM PHOSPHATE) [Concomitant]
  9. LEVAXIN [Concomitant]
     Active Substance: LEVOTHYROXINE SODIUM
  10. NITROGLYCERIN. [Concomitant]
     Active Substance: NITROGLYCERIN
  11. LACTULOSE. [Concomitant]
     Active Substance: LACTULOSE
  12. LOSARTAN POTASSIUM. [Concomitant]
     Active Substance: LOSARTAN POTASSIUM
  13. NASONEX [Concomitant]
     Active Substance: MOMETASONE FUROATE
  14. OVESTERIN [Concomitant]
     Active Substance: ESTRIOL
  15. ALLOPURINOL. [Concomitant]
     Active Substance: ALLOPURINOL
  16. ATARAX [Concomitant]
     Active Substance: HYDROXYZINE\HYDROXYZINE HYDROCHLORIDE
  17. EZETROL [Suspect]
     Active Substance: EZETIMIBE
     Indication: HYPERCHOLESTEROLAEMIA
     Dosage: 10 MG, QH
     Dates: start: 20140428, end: 20140618
  18. EPINEPHRINE BITARTRATE [Concomitant]
     Active Substance: EPINEPHRINE BITARTRATE
  19. TROMBYL [Concomitant]
     Active Substance: ASPIRIN
  20. EPIPEN [Concomitant]
     Active Substance: EPINEPHRINE
  21. OXYNORM [Concomitant]
     Active Substance: OXYCODONE HYDROCHLORIDE
  22. OMEPRAZOLE. [Concomitant]
     Active Substance: OMEPRAZOLE
  23. CRESTOR [Concomitant]
     Active Substance: ROSUVASTATIN CALCIUM

REACTIONS (2)
  - Angina pectoris [Recovered/Resolved]
  - Alopecia [Unknown]
